FAERS Safety Report 10005936 (Version 2)
Quarter: 2014Q2

REPORT INFORMATION
  Report Type: Report from Study
  Country: JP (occurrence: JP)
  Receive Date: 20140313
  Receipt Date: 20140417
  Transmission Date: 20141212
  Serious: Yes (Hospitalization)
  Sender: FDA-Public Use
  Company Number: JP-UCBSA-114459

PATIENT
  Age: 54 Year
  Sex: Female
  Weight: 68.5 kg

DRUGS (6)
  1. CIMZIA [Suspect]
     Indication: RHEUMATOID ARTHRITIS
     Dosage: 200 MG SYRINGE, DOSE: 400 MG
     Route: 058
     Dates: start: 20130724, end: 20130724
  2. METOLATE [Concomitant]
     Route: 048
  3. VOLTAREN [Concomitant]
     Route: 054
  4. MEDROL [Concomitant]
     Route: 048
  5. LOXOPROFEN SODIUM HYDRATE [Concomitant]
     Dosage: 180 MG
     Route: 048
  6. FOLIAMIN [Concomitant]
     Route: 048

REACTIONS (1)
  - Arthritis bacterial [Recovered/Resolved]
